FAERS Safety Report 10948824 (Version 1)
Quarter: 2015Q1

REPORT INFORMATION
  Report Type: Spontaneous
  Country: FR (occurrence: None)
  Receive Date: 20150320
  Receipt Date: 20150320
  Transmission Date: 20150721
  Serious: Yes (Hospitalization)
  Sender: FDA-Public Use
  Company Number: 2785409

PATIENT
  Age: 56 Year
  Sex: Male

DRUGS (11)
  1. CARBOPLATIN. [Suspect]
     Active Substance: CARBOPLATIN
     Indication: METASTASES TO BONE
     Route: 041
     Dates: start: 20150102
  2. GEMCITABINE HYDROCHLORIDE. [Suspect]
     Active Substance: GEMCITABINE HYDROCHLORIDE
     Indication: METASTASES TO BONE
     Route: 041
     Dates: start: 201501
  3. XEPLION [Concomitant]
     Active Substance: PALIPERIDONE PALMITATE
  4. DEPAKOTE [Concomitant]
     Active Substance: DIVALPROEX SODIUM
  5. GEMCITABINE HYDROCHLORIDE. [Suspect]
     Active Substance: GEMCITABINE HYDROCHLORIDE
     Indication: LUNG NEOPLASM MALIGNANT
     Route: 041
     Dates: start: 201501
  6. LEPTICUR [Concomitant]
     Active Substance: TROPATEPINE HYDROCHLORIDE
  7. SOLUPRED [Concomitant]
     Active Substance: PREDNISOLONE
  8. CARBOPLATIN. [Suspect]
     Active Substance: CARBOPLATIN
     Indication: LUNG NEOPLASM MALIGNANT
     Route: 041
     Dates: start: 20150102
  9. FLUANXOL [Concomitant]
     Active Substance: FLUPENTIXOL
  10. SOLU-MEDROL [Concomitant]
     Active Substance: METHYLPREDNISOLONE SODIUM SUCCINATE
  11. ZOPHREN [Concomitant]
     Active Substance: ONDANSETRON

REACTIONS (6)
  - Thrombocytopenia [None]
  - Epistaxis [None]
  - Neutropenia [None]
  - General physical health deterioration [None]
  - Inflammation [None]
  - Anaemia [None]

NARRATIVE: CASE EVENT DATE: 201501
